FAERS Safety Report 14958266 (Version 1)
Quarter: 2018Q2

REPORT INFORMATION
  Report Type: Spontaneous
  Country: US (occurrence: US)
  Receive Date: 20180509
  Receipt Date: 20180509
  Transmission Date: 20180711
  Serious: Yes (Hospitalization)
  Sender: FDA-Public Use
  Company Number: None

PATIENT
  Age: 70 Year
  Sex: Male
  Weight: 99.9 kg

DRUGS (1)
  1. ONCASPAR [Suspect]
     Active Substance: PEGASPARGASE
     Dates: end: 20180429

REACTIONS (9)
  - Condition aggravated [None]
  - Pancytopenia [None]
  - Pulmonary embolism [None]
  - Asthenia [None]
  - Dyspnoea exertional [None]
  - Hypotension [None]
  - Arrhythmia supraventricular [None]
  - Tachycardia [None]
  - Respiratory distress [None]

NARRATIVE: CASE EVENT DATE: 20180507
